FAERS Safety Report 5765490-0 (Version None)
Quarter: 2008Q2

REPORT INFORMATION
  Report Type: 
  Country: None (occurrence: None)
  Receive Date: 20080611
  Receipt Date: 20080529
  Transmission Date: 20081010
  Serious: Yes (Hospitalization)
  Sender: FDA-Public Use
  Company Number: B0523113A

PATIENT
  Age: 40 Year
  Sex: Male

DRUGS (5)
  1. AUGMENTIN '125' [Suspect]
     Route: 048
     Dates: start: 20080201
  2. DAFALGAN [Suspect]
     Route: 048
     Dates: start: 20080201
  3. SMECTA [Suspect]
     Route: 048
     Dates: start: 20080310, end: 20080315
  4. IMODIUM [Suspect]
     Route: 048
     Dates: start: 20080310, end: 20080315
  5. ULTRA LEVURE [Concomitant]
     Route: 048
     Dates: start: 20080310, end: 20080315

REACTIONS (10)
  - ANTINUCLEAR ANTIBODY POSITIVE [None]
  - BLOOD COPPER INCREASED [None]
  - CHROMATURIA [None]
  - DIARRHOEA [None]
  - FAECES DISCOLOURED [None]
  - HEPATIC FIBROSIS [None]
  - HEPATITIS [None]
  - JAUNDICE [None]
  - PRURITUS [None]
  - WEIGHT DECREASED [None]
